FAERS Safety Report 6453110-1 (Version None)
Quarter: 2009Q4

REPORT INFORMATION
  Report Type: 
  Country: None (occurrence: None)
  Receive Date: 20091102
  Receipt Date: 20091102
  Transmission Date: 20100525
  Serious: Yes (Hospitalization)
  Sender: FDA-Public Use
  Company Number: AUR-APL-2009-01165

PATIENT
  Age: 30 Year
  Sex: Male

DRUGS (2)
  1. LAMOTRIGINE [Suspect]
     Indication: STATUS EPILEPTICUS
     Dosage: 25MG EVERY SECOND DAY
  2. VALPROIC ACID [Suspect]
     Indication: STATUS EPILEPTICUS
     Dosage: 40 MG/KG/DAY, IV; 1000MG PO QD
     Route: 042

REACTIONS (1)
  - PSYCHOTIC DISORDER DUE TO A GENERAL MEDICAL CONDITION [None]
